FAERS Safety Report 18009744 (Version 1)
Quarter: 2020Q3

REPORT INFORMATION
  Report Type: Spontaneous
  Country: DE (occurrence: FR)
  Receive Date: 20200710
  Receipt Date: 20200710
  Transmission Date: 20201103
  Serious: Yes (Life-Threatening)
  Sender: FDA-Public Use
  Company Number: FR-ELI_LILLY_AND_COMPANY-FR202007003637

PATIENT
  Age: 67 Year
  Sex: Male
  Weight: 130 kg

DRUGS (1)
  1. ERBITUX [Suspect]
     Active Substance: CETUXIMAB
     Indication: LARYNGEAL CANCER
     Dosage: 250 MG/M2, UNK
     Route: 041
     Dates: start: 20200604, end: 20200604

REACTIONS (3)
  - Oxygen saturation decreased [Recovered/Resolved]
  - Pulmonary embolism [Recovering/Resolving]
  - Dyspnoea [Recovered/Resolved]

NARRATIVE: CASE EVENT DATE: 20200604
